FAERS Safety Report 7981440-0 (Version None)
Quarter: 2011Q4

REPORT INFORMATION
  Report Type: 
  Country: None (occurrence: None)
  Receive Date: 20111213
  Receipt Date: 20111207
  Transmission Date: 20120403
  Serious: Yes (Hospitalization)
  Sender: FDA-Public Use
  Company Number: 2011MA017326

PATIENT
  Age: 86 Year
  Sex: Female

DRUGS (7)
  1. AMLODIPINE [Concomitant]
  2. MIRTAZAPINE [Suspect]
     Indication: MAJOR DEPRESSION
     Dosage: 30 MG;QD;PO
     Route: 048
     Dates: start: 20110915, end: 20110922
  3. TEGRETOL [Concomitant]
  4. MIRTAZAPINE [Suspect]
     Indication: MAJOR DEPRESSION
     Dosage: 30 MG;QD;PO
     Route: 048
     Dates: start: 20110915, end: 20110922
  5. CARDURA [Concomitant]
  6. NEBIVOLOL HCL [Concomitant]
  7. PLAUNAZIDE [Concomitant]

REACTIONS (1)
  - HYPONATRAEMIA [None]
